FAERS Safety Report 7108520-6 (Version None)
Quarter: 2010Q4

REPORT INFORMATION
  Report Type: 
  Country: None (occurrence: None)
  Receive Date: 20101117
  Receipt Date: 20101018
  Transmission Date: 20110411
  Serious: No
  Sender: FDA-Public Use
  Company Number: A0875169A

PATIENT
  Age: 65 Year
  Sex: Female

DRUGS (2)
  1. VOTRIENT [Suspect]
     Indication: PRODUCT USED FOR UNKNOWN INDICATION
     Dosage: 400MG TWICE PER DAY
     Route: 048
     Dates: start: 20100324, end: 20100101
  2. RADIATION THERAPY [Suspect]

REACTIONS (7)
  - ALOPECIA [None]
  - DECREASED APPETITE [None]
  - DRUG INEFFECTIVE [None]
  - HAIR COLOUR CHANGES [None]
  - MUSCLE TWITCHING [None]
  - NAUSEA [None]
  - OXYGEN SATURATION DECREASED [None]
